FAERS Safety Report 6444582-7 (Version None)
Quarter: 2009Q4

REPORT INFORMATION
  Report Type: 
  Country: None (occurrence: None)
  Receive Date: 20091118
  Receipt Date: 20090929
  Transmission Date: 20100525
  Serious: No
  Sender: FDA-Public Use
  Company Number: A0809534A

PATIENT
  Age: 65 Year
  Sex: Female

DRUGS (13)
  1. COREG CR [Suspect]
     Indication: DRUG USE FOR UNKNOWN INDICATION
     Dosage: 10MG PER DAY
     Route: 048
     Dates: start: 20050101
  2. OXYGEN [Concomitant]
  3. PLAVIX [Concomitant]
  4. GLUCOPHAGE [Concomitant]
  5. COREG CR [Concomitant]
  6. FUROSEMIDE [Concomitant]
  7. ASPIRIN [Concomitant]
  8. LIPITOR [Concomitant]
  9. NOVOLIN R [Concomitant]
  10. NOVOLIN 30/70 [Concomitant]
  11. DIPROLENE [Concomitant]
  12. NASACORT [Concomitant]
  13. ALBUTEROL [Concomitant]

REACTIONS (2)
  - HEART RATE INCREASED [None]
  - HYPOTENSION [None]
